FAERS Safety Report 5993808-2 (Version None)
Quarter: 2008Q4

REPORT INFORMATION
  Report Type: 
  Country: None (occurrence: None)
  Receive Date: 20081212
  Receipt Date: 20081028
  Transmission Date: 20090506
  Serious: No
  Sender: FDA-Public Use
  Company Number: US-ABBOTT-06P-163-0354009-00

PATIENT
  Sex: Male
  Weight: 61.29 kg

DRUGS (4)
  1. HUMIRA [Suspect]
     Indication: CROHN'S DISEASE
     Route: 058
     Dates: start: 20050117
  2. MERCAPTOPURINE [Suspect]
     Indication: CROHN'S DISEASE
     Route: 048
  3. PENTASA [Concomitant]
     Indication: CROHN'S DISEASE
     Route: 048
  4. CRYSTALLINE VIT B12 INJ [Concomitant]
     Indication: CROHN'S DISEASE
     Route: 058

REACTIONS (2)
  - EAR INFECTION [None]
  - TINNITUS [None]
